FAERS Safety Report 7321526-7 (Version None)
Quarter: 2011Q1

REPORT INFORMATION
  Report Type: 
  Country: None (occurrence: None)
  Receive Date: 20110228
  Receipt Date: 20100301
  Transmission Date: 20110831
  Serious: No
  Sender: FDA-Public Use
  Company Number: A0847350A

PATIENT
  Sex: Female

DRUGS (14)
  1. PLAVIX [Concomitant]
  2. FLAX SEED OIL [Concomitant]
  3. LEFLUNOMIDE [Concomitant]
  4. VALACYCLOVIR [Suspect]
     Indication: HERPES SIMPLEX
     Dosage: 500MG PER DAY
     Route: 048
     Dates: start: 20100213, end: 20100217
  5. ZIAC [Concomitant]
  6. GABAPENTIN [Concomitant]
  7. INDAPAMIDE [Concomitant]
  8. FOLIC ACID [Concomitant]
  9. ACTONEL [Concomitant]
  10. DETROL LA [Concomitant]
  11. CENTRUM SILVER [Concomitant]
  12. KLOR-CON [Concomitant]
  13. XANAX [Concomitant]
  14. OSCAL [Concomitant]

REACTIONS (2)
  - HERPES SIMPLEX [None]
  - THERAPEUTIC RESPONSE DECREASED [None]
